FAERS Safety Report 5622678-7 (Version None)
Quarter: 2008Q1

REPORT INFORMATION
  Report Type: 
  Country: None (occurrence: None)
  Receive Date: 20080208
  Receipt Date: 20080208
  Transmission Date: 20080703
  Serious: No
  Sender: FDA-Public Use
  Company Number: None

PATIENT
  Age: 34 Year

DRUGS (1)
  1. SURGICAL ABSORBABLE HEMOSTAT [Suspect]
     Indication: OPERATIVE HAEMORRHAGE
     Dates: start: 20050824

REACTIONS (8)
  - ADHESION [None]
  - HAEMATOMA [None]
  - PELVIC ABSCESS [None]
  - PELVIC FLUID COLLECTION [None]
  - PHARMACEUTICAL PRODUCT COMPLAINT [None]
  - POST PROCEDURAL COMPLICATION [None]
  - PYREXIA [None]
  - SCAR [None]
